FAERS Safety Report 9542296 (Version 1)
Quarter: 2013Q3

REPORT INFORMATION
  Report Type: Spontaneous
  Country: US (occurrence: None)
  Receive Date: 20130723
  Receipt Date: 20130723
  Transmission Date: 20140515
  Serious: Yes (Other)
  Sender: FDA-Public Use
  Company Number: AUR-APL-2013-05937

PATIENT
  Age: 72 Year
  Sex: Male
  Weight: 64.4 kg

DRUGS (6)
  1. METOPROLOL TARTRATE (METOPROLOL TARTRATE) (TABLETS) (METOPROLOL TARTRATE) [Concomitant]
  2. TEMAZEPAM (TEMAZEPAM) [Concomitant]
  3. LORAZEPAM (LORAZEPAM) [Concomitant]
  4. CITALOPRAM (CITALOPRAM) [Suspect]
     Indication: DEPRESSION
  5. ZOLOFT (SERTRALINE HYDROCHLORIDE) [Suspect]
     Indication: DEPRESSION
     Dates: start: 201212
  6. PROSCAR [Concomitant]

REACTIONS (4)
  - Blood urine [None]
  - Thrombosis [None]
  - Haemorrhage [None]
  - Drug ineffective [None]
